FAERS Safety Report 4558737-X (Version None)
Quarter: 2005Q1

REPORT INFORMATION
  Report Type: 
  Country: None (occurrence: None)
  Receive Date: 20050121
  Receipt Date: 20050121
  Transmission Date: 20050727
  Serious: No
  Sender: FDA-Public Use
  Company Number: None

PATIENT
  Sex: Male
  Weight: 100.6985 kg

DRUGS (1)
  1. TERAZOSIN [Suspect]
     Dosage: 3MG   QHS   ORAL
     Route: 048
     Dates: start: 20010410, end: 20041128

REACTIONS (1)
  - HYPOTENSION [None]
